FAERS Safety Report 18106680 (Version 2)
Quarter: 2020Q3

REPORT INFORMATION
  Report Type: Other
  Country: SE (occurrence: SE)
  Receive Date: 20200804
  Receipt Date: 20200806
  Transmission Date: 20201103
  Serious: Yes (Hospitalization)
  Sender: FDA-Public Use
  Company Number: SE-ASTELLAS-2020US025992

PATIENT
  Age: 60 Year
  Sex: Female

DRUGS (1)
  1. SOLIFENACIN [Suspect]
     Active Substance: SOLIFENACIN
     Indication: MICTURITION URGENCY
     Route: 065
     Dates: start: 20200618, end: 202007

REACTIONS (1)
  - Fall [Unknown]

NARRATIVE: CASE EVENT DATE: 202006
